FAERS Safety Report 8888603 (Version 2)
Quarter: 2013Q1

REPORT INFORMATION
  Report Type: Spontaneous
  Country: AU (occurrence: AU)
  Receive Date: 20121106
  Receipt Date: 20130214
  Transmission Date: 20140127
  Serious: Yes (Other)
  Sender: FDA-Public Use
  Company Number: AU-ROCHE-1135797

PATIENT
  Sex: Female
  Weight: 53 kg

DRUGS (2)
  1. ROACCUTANE [Suspect]
     Indication: ACNE
     Route: 065
  2. ROACCUTANE [Suspect]
     Route: 065

REACTIONS (6)
  - Suicidal ideation [Unknown]
  - Alopecia [Unknown]
  - Dry skin [Unknown]
  - Skin tightness [Unknown]
  - Skin wrinkling [Unknown]
  - Skin atrophy [Unknown]
